FAERS Safety Report 5590994-3 (Version None)
Quarter: 2008Q1

REPORT INFORMATION
  Report Type: 
  Country: None (occurrence: None)
  Receive Date: 20080115
  Receipt Date: 20080103
  Transmission Date: 20080703
  Serious: Yes (Other)
  Sender: FDA-Public Use
  Company Number: US-BAYER-US-2007-006376

PATIENT
  Age: 62 Year
  Sex: Male

DRUGS (47)
  1. MAGNEVIST [Suspect]
     Indication: NUCLEAR MAGNETIC RESONANCE IMAGING
     Dosage: UNIT DOSE: 20 ML
     Route: 042
     Dates: start: 19991211, end: 19991211
  2. MAGNEVIST [Suspect]
     Dosage: UNIT DOSE: 20 ML
     Route: 042
     Dates: start: 20020630, end: 20020630
  3. MAGNEVIST [Suspect]
     Dosage: UNIT DOSE: 20 ML
     Route: 042
     Dates: start: 20020912, end: 20020912
  4. MAGNEVIST [Suspect]
     Dosage: UNIT DOSE: 20 ML
     Route: 042
     Dates: start: 20031016, end: 20031016
  5. MAGNEVIST [Suspect]
     Dosage: UNIT DOSE: 20 ML
     Route: 042
     Dates: start: 20060609, end: 20060609
  6. PRILOSEC [Concomitant]
     Dates: start: 19990827
  7. ZOLOFT [Concomitant]
     Dates: start: 19990827
  8. NEPHROCAPS [Concomitant]
     Dates: start: 20060808
  9. NEPHROCAPS [Concomitant]
     Dates: start: 19990827
  10. CALCIUM CARBONATE [Concomitant]
     Dates: start: 19990827
  11. ROCALTROL [Concomitant]
     Dates: start: 19990827
  12. EPOGEN [Concomitant]
     Dates: start: 20050619, end: 20051001
  13. EPOGEN [Concomitant]
  14. EPOGEN [Concomitant]
     Dates: start: 19990827
  15. DIAZEPAM [Concomitant]
     Dates: start: 19990827
  16. TYLENOL [Concomitant]
     Dates: start: 19990908
  17. LIPITOR [Concomitant]
     Dosage: UNIT DOSE: 10 MG
     Route: 048
     Dates: start: 19990908
  18. MIACALCIN [Concomitant]
     Route: 058
     Dates: start: 19990908
  19. COLACE [Concomitant]
     Dosage: UNIT DOSE: 100 MG
     Dates: start: 20060808
  20. COLACE [Concomitant]
     Dates: start: 20060625
  21. COLACE [Concomitant]
     Dates: start: 19990908
  22. DULCOLAX [Concomitant]
     Dates: start: 19990908
  23. DROPERIDOL [Concomitant]
     Dates: start: 19990908
  24. SENOKOT /UNK/ [Concomitant]
     Dates: start: 19990908
  25. ASPIRIN [Concomitant]
     Dates: start: 20050619
  26. OMEPRAZOLE [Concomitant]
     Dosage: UNIT DOSE: 40 MG
     Route: 048
     Dates: start: 20050619
  27. RENAGEL [Concomitant]
     Dates: start: 20050619
  28. REMERON /SCH/ [Concomitant]
     Dosage: UNIT DOSE: 30 MG
     Dates: start: 20060808
  29. REMERON /SCH/ [Concomitant]
     Dates: start: 20050619
  30. EFFEXOR [Concomitant]
     Dosage: UNIT DOSE: 300 MG
     Dates: start: 20060625
  31. EFFEXOR [Concomitant]
     Dates: start: 20050619
  32. MIRALAX [Concomitant]
     Dates: start: 20050619
  33. ZEMPLAR [Concomitant]
     Dates: start: 20060808
  34. ZEMPLAR [Concomitant]
     Dosage: UNIT DOSE: 8 ?G
     Dates: start: 20050619
  35. UNSPECIFIED DRUG [Concomitant]
     Indication: HYPERPARATHYROIDISM
     Dosage: UNIT DOSE: 120 MG
     Dates: start: 20060808
  36. UNSPECIFIED DRUG [Concomitant]
     Dosage: UNIT DOSE: 60 MG
     Dates: start: 20060625
  37. UNSPECIFIED DRUG [Concomitant]
     Dates: start: 20050619
  38. MYLANTA-II /USA/ [Concomitant]
  39. NEXIUM [Concomitant]
     Dosage: UNIT DOSE: 40 MG
     Dates: start: 20060625
  40. FOLATE SODIUM [Concomitant]
     Dates: start: 20060625
  41. MIRALAX [Concomitant]
     Dates: start: 20060625
  42. ZEMPLAR [Concomitant]
     Dates: start: 20060625
  43. ASPIRIN [Concomitant]
     Dosage: UNIT DOSE: 81 MG
     Dates: start: 20060625
  44. MOTRIN [Concomitant]
     Dates: start: 20060625
  45. ARANESP [Concomitant]
     Dates: start: 20060819
  46. EFFEXOR XR [Concomitant]
     Dosage: UNIT DOSE: 300 MG
     Dates: start: 20060808
  47. FOLIC ACID [Concomitant]
     Dosage: UNIT DOSE: 1 MG
     Dates: start: 20060808

REACTIONS (8)
  - ARTHRITIS BACTERIAL [None]
  - ENDOCARDITIS [None]
  - HYPOCALCAEMIA [None]
  - MYOCLONUS [None]
  - NEPHROGENIC SYSTEMIC FIBROSIS [None]
  - PROCEDURAL HYPOTENSION [None]
  - RETROPERITONEAL HAEMORRHAGE [None]
  - STAPHYLOCOCCAL BACTERAEMIA [None]
